FAERS Safety Report 8816243 (Version 2)
Quarter: 2013Q1

REPORT INFORMATION
  Report Type: Spontaneous
  Country: US (occurrence: US)
  Receive Date: 20120930
  Receipt Date: 20130206
  Transmission Date: 20140127
  Serious: No
  Sender: FDA-Public Use
  Company Number: US-009507513-1209USA012066

PATIENT
  Age: 54 None
  Sex: Male

DRUGS (3)
  1. PEGINTRON [Suspect]
     Indication: HEPATITIS C
     Dosage: 150 MICROGRAM, QW
     Dates: start: 20120621
  2. TELAPREVIR [Suspect]
  3. RIBASPHERE [Suspect]

REACTIONS (3)
  - Weight increased [Unknown]
  - Rash [Recovering/Resolving]
  - Dermatitis infected [Recovering/Resolving]
